FAERS Safety Report 13567613 (Version 1)
Quarter: 2017Q2

REPORT INFORMATION
  Report Type: Spontaneous
  Country: US (occurrence: US)
  Receive Date: 20170522
  Receipt Date: 20170522
  Transmission Date: 20170830
  Serious: No
  Sender: FDA-Public Use
  Company Number: US-TEVA-702315USA

PATIENT
  Age: 54 Year
  Sex: Female

DRUGS (1)
  1. JINTELI [Suspect]
     Active Substance: ETHINYL ESTRADIOL\NORETHINDRONE ACETATE
     Indication: OSTEOPOROSIS POSTMENOPAUSAL
     Dosage: 1 MG / 5 MCG

REACTIONS (3)
  - Drug ineffective [Unknown]
  - Menorrhagia [Unknown]
  - Menstruation irregular [Not Recovered/Not Resolved]

NARRATIVE: CASE EVENT DATE: 20161006
